FAERS Safety Report 11385963 (Version 1)
Quarter: 2015Q3

REPORT INFORMATION
  Report Type: Spontaneous
  Country: JP (occurrence: JP)
  Receive Date: 20150817
  Receipt Date: 20150817
  Transmission Date: 20151125
  Serious: Yes (Hospitalization)
  Sender: FDA-Public Use
  Company Number: JP-EMCURE-000823

PATIENT
  Age: 56 Year
  Sex: Female

DRUGS (1)
  1. CARMUSTINE [Suspect]
     Active Substance: CARMUSTINE
     Indication: GLIOBLASTOMA

REACTIONS (1)
  - Status epilepticus [Recovered/Resolved]
